FAERS Safety Report 18405712 (Version 1)
Quarter: 2020Q4

REPORT INFORMATION
  Report Type: Report from Study
  Country: IN (occurrence: IN)
  Receive Date: 20201020
  Receipt Date: 20201020
  Transmission Date: 20210114
  Serious: Yes (Hospitalization)
  Sender: FDA-Public Use
  Company Number: IN-LARKEN LABORATORIES, INC.-2092946

PATIENT
  Age: 36 Year
  Sex: Male
  Weight: 68.18 kg

DRUGS (1)
  1. OFLOXACIN TABLET FILM COATED [Suspect]
     Active Substance: OFLOXACIN
     Indication: DIARRHOEA
     Route: 048

REACTIONS (1)
  - Pancreatitis acute [Recovered/Resolved]
